FAERS Safety Report 8865032 (Version 1)
Quarter: 2012Q4

REPORT INFORMATION
  Report Type: 
  Country: US (occurrence: US)
  Receive Date: 20121024
  Receipt Date: 20121024
  Transmission Date: 20130627
  Serious: No
  Sender: FDA-Public Use
  Company Number: US-AMGEN-USASP2012000700

PATIENT
  Sex: Female

DRUGS (5)
  1. ENBREL [Suspect]
     Dosage: 50 mg, qwk
  2. LEVOXYL [Concomitant]
     Dosage: 75 mug, UNK
  3. CALCIUM +D [Concomitant]
     Dosage: UNK
  4. MULTIVITAMIN [Concomitant]
     Dosage: UNK
  5. METHOTREXATE [Concomitant]
     Dosage: UNK

REACTIONS (2)
  - Injection site erythema [Unknown]
  - Injection site pruritus [Unknown]
